FAERS Safety Report 14189145 (Version 6)
Quarter: 2018Q1

REPORT INFORMATION
  Report Type: Report from Study
  Country: GB (occurrence: GB)
  Receive Date: 20171115
  Receipt Date: 20180327
  Transmission Date: 20180508
  Serious: Yes (Other)
  Sender: FDA-Public Use
  Company Number: GB-ROCHE-1989422

PATIENT
  Sex: Male

DRUGS (4)
  1. ESBRIET [Suspect]
     Active Substance: PIRFENIDONE
     Route: 048
  2. ESBRIET [Suspect]
     Active Substance: PIRFENIDONE
     Route: 048
     Dates: start: 20170828
  3. ESBRIET [Suspect]
     Active Substance: PIRFENIDONE
     Route: 048
  4. ESBRIET [Suspect]
     Active Substance: PIRFENIDONE
     Indication: IDIOPATHIC PULMONARY FIBROSIS
     Route: 048
     Dates: start: 20170728

REACTIONS (20)
  - Hiatus hernia [Unknown]
  - Gait disturbance [Unknown]
  - Dyspnoea [Unknown]
  - Malaise [Recovered/Resolved]
  - Depressed mood [Unknown]
  - Sputum discoloured [Recovered/Resolved]
  - Cough [Unknown]
  - Nausea [Recovering/Resolving]
  - Peripheral swelling [Unknown]
  - Weight decreased [Unknown]
  - Dizziness [Recovered/Resolved]
  - Asthenia [Unknown]
  - Gastrooesophageal reflux disease [Unknown]
  - Nasopharyngitis [Recovering/Resolving]
  - Back disorder [Unknown]
  - Decreased appetite [Unknown]
  - Swelling face [Recovered/Resolved]
  - Fatigue [Unknown]
  - Feeling abnormal [Unknown]
  - Rash [Unknown]
